FAERS Safety Report 4953792-7 (Version None)
Quarter: 2006Q1

REPORT INFORMATION
  Report Type: 
  Country: None (occurrence: None)
  Receive Date: 20060321
  Receipt Date: 20060316
  Transmission Date: 20060701
  Serious: Yes (Hospitalization, Other)
  Sender: FDA-Public Use
  Company Number: S06-USA-00215-01

PATIENT
  Age: 83 Year
  Sex: Female

DRUGS (4)
  1. NAMENDA [Suspect]
     Indication: DEMENTIA
     Dosage: 5 MG QD PO
     Route: 048
     Dates: start: 20051203, end: 20051206
  2. RISPERDAL [Concomitant]
  3. TRAZODONE HCL [Concomitant]
  4. ANTIHYPERTENSIVE MEDICATION (NOS) [Concomitant]

REACTIONS (4)
  - DIFFICULTY IN WALKING [None]
  - LACK OF SPONTANEOUS SPEECH [None]
  - LIVING IN RESIDENTIAL INSTITUTION [None]
  - RENAL FAILURE [None]
